FAERS Safety Report 12321675 (Version 1)
Quarter: 2016Q2

REPORT INFORMATION
  Report Type: Spontaneous
  Country: US (occurrence: US)
  Receive Date: 20160502
  Receipt Date: 20160502
  Transmission Date: 20160815
  Serious: Yes (Other)
  Sender: FDA-Public Use
  Company Number: US-TORRENT-00001202

PATIENT
  Sex: Female

DRUGS (1)
  1. ESCITALOPRAM [Suspect]
     Active Substance: ESCITALOPRAM OXALATE
     Indication: PRODUCT USED FOR UNKNOWN INDICATION
     Dosage: 1/2 TABLET DAILY (20MG)
     Dates: end: 20160423

REACTIONS (6)
  - Abdominal discomfort [Unknown]
  - Emotional distress [Unknown]
  - Tension [Unknown]
  - Tremor [Unknown]
  - Nasopharyngitis [Unknown]
  - Surgery [Recovered/Resolved]
